FAERS Safety Report 12528266 (Version 2)
Quarter: 2016Q3

REPORT INFORMATION
  Report Type: Spontaneous
  Country: TR (occurrence: TR)
  Receive Date: 20160705
  Receipt Date: 20160729
  Transmission Date: 20161109
  Serious: Yes (Hospitalization)
  Sender: FDA-Public Use
  Company Number: TR-PFIZER INC-2016325980

PATIENT
  Age: 42 Year
  Sex: Female
  Weight: 68 kg

DRUGS (1)
  1. DRUG, UNSPECIFIED [Suspect]
     Active Substance: UNSPECIFIED INGREDIENT
     Dosage: UNK, 4X/DAY
     Dates: start: 20160522

REACTIONS (5)
  - Dermatitis [Unknown]
  - Occupational exposure to product [Unknown]
  - Body temperature increased [Unknown]
  - Tachycardia [Unknown]
  - Pruritus [Unknown]

NARRATIVE: CASE EVENT DATE: 20160522
